FAERS Safety Report 15048059 (Version 2)
Quarter: 2018Q3

REPORT INFORMATION
  Report Type: Spontaneous
  Country: US (occurrence: US)
  Receive Date: 20180622
  Receipt Date: 20180723
  Transmission Date: 20181010
  Serious: No
  Sender: FDA-Public Use
  Company Number: US-TEVA-2018-US-901300

PATIENT
  Sex: Female

DRUGS (1)
  1. LIDOCAINE. [Suspect]
     Active Substance: LIDOCAINE
     Dates: start: 20180516, end: 201805

REACTIONS (3)
  - Wrong technique in product usage process [Unknown]
  - Product adhesion issue [Unknown]
  - Drug ineffective [Unknown]
